FAERS Safety Report 7620072-0 (Version None)
Quarter: 2011Q3

REPORT INFORMATION
  Report Type: 
  Country: None (occurrence: None)
  Receive Date: 20110719
  Receipt Date: 20110707
  Transmission Date: 20111222
  Serious: Yes (Other)
  Sender: FDA-Public Use
  Company Number: US-JNJFOC-20100701863

PATIENT
  Sex: Male
  Weight: 66.23 kg

DRUGS (4)
  1. REMICADE [Suspect]
     Indication: RHEUMATOID ARTHRITIS
     Route: 042
  2. TRAZODONE [Concomitant]
     Indication: SLEEP DISORDER
  3. SIMPONI [Suspect]
     Indication: RHEUMATOID ARTHRITIS
     Route: 058
     Dates: start: 20090601, end: 20100501
  4. LORTAB [Concomitant]
     Indication: PAIN

REACTIONS (1)
  - HODGKIN'S DISEASE [None]
